FAERS Safety Report 12517933 (Version 1)
Quarter: 2016Q2

REPORT INFORMATION
  Report Type: Report from Study
  Country: BR (occurrence: BR)
  Receive Date: 20160630
  Receipt Date: 20160630
  Transmission Date: 20160815
  Serious: Yes (Death)
  Sender: FDA-Public Use
  Company Number: PHHY2016BR089893

PATIENT
  Sex: Male

DRUGS (4)
  1. EXELON PATCH [Suspect]
     Active Substance: RIVASTIGMINE
     Indication: DIABETES MELLITUS
     Dosage: PATCH 10 (CM2), QD
     Route: 062
  2. EXELON PATCH [Suspect]
     Active Substance: RIVASTIGMINE
     Indication: DEMENTIA ALZHEIMER^S TYPE
  3. EXELON PATCH [Suspect]
     Active Substance: RIVASTIGMINE
     Indication: NEOPLASM MALIGNANT
  4. EXELON PATCH [Suspect]
     Active Substance: RIVASTIGMINE
     Indication: HYPERTENSION

REACTIONS (3)
  - Vascular calcification [Fatal]
  - Aspiration [Fatal]
  - Product use issue [Unknown]
